FAERS Safety Report 8881719 (Version 2)
Quarter: 2012Q4

REPORT INFORMATION
  Report Type: 
  Country: US (occurrence: US)
  Receive Date: 20121101
  Receipt Date: 20121109
  Transmission Date: 20130627
  Serious: Yes (Hospitalization, Other)
  Sender: FDA-Public Use
  Company Number: US-PURDUE-USA-2012-0095030

PATIENT
  Age: 17 Year
  Sex: Female
  Weight: 45.6 kg

DRUGS (17)
  1. HYDROMORPHONE HCL (SIMILAR TO 19-892) [Suspect]
     Indication: PRODUCT USED FOR UNKNOWN INDICATION
     Dosage: unknown
  2. VELCADE [Suspect]
     Indication: ACUTE MYELOID LEUKAEMIA
     Dosage: 1.3 mg/m2, cyclic
     Route: 040
     Dates: start: 20120609
  3. VELCADE [Suspect]
     Dosage: 1 mg/m2, Cyclic
     Route: 040
     Dates: start: 20120918, end: 20120925
  4. CYTARABINE [Suspect]
     Indication: ACUTE MYELOID LEUKAEMIA
     Dosage: UNK
     Route: 037
     Dates: start: 20120609, end: 20120922
  5. CYTARABINE [Suspect]
     Dosage: 100 mg/m2, Cyclic
     Route: 042
     Dates: start: 20120609, end: 20120922
  6. CYTARABINE [Suspect]
     Dosage: 1000 mg/m2, Cyclic
     Route: 042
     Dates: start: 20120609, end: 20120922
  7. ETOPOSIDE [Suspect]
     Indication: ACUTE MYELOID LEUKAEMIA
     Dosage: 100 mg/m2, Cyclic
     Dates: start: 20120609
  8. ETOPOSIDE [Suspect]
     Dosage: 150 mg/m2, Cyclic
     Route: 042
     Dates: start: 20120918, end: 20120922
  9. DEXAMETHASONE [Suspect]
     Indication: PRODUCT USED FOR UNKNOWN INDICATION
     Dosage: 3.5 UNK, UNK
     Route: 042
  10. DAUNORUBICIN HYDROCHLORIDE [Suspect]
     Indication: ACUTE MYELOID LEUKAEMIA
     Dosage: 50 mg/m2,Cyclic
     Route: 042
     Dates: start: 20120609, end: 20120613
  11. ACETAMINOPHEN W/HYDROCODONE [Suspect]
     Indication: PRODUCT USED FOR UNKNOWN INDICATION
     Dosage: unknown
  12. METRONIDAZOLE [Suspect]
     Indication: PRODUCT USED FOR UNKNOWN INDICATION
     Dosage: unknown
  13. LORAZEPAM [Suspect]
     Indication: PRODUCT USED FOR UNKNOWN INDICATION
     Dosage: unknown
  14. VORICONAZOLE [Suspect]
     Indication: PRODUCT USED FOR UNKNOWN INDICATION
     Dosage: unknown
  15. LEVOFLOXACIN [Suspect]
     Indication: PRODUCT USED FOR UNKNOWN INDICATION
     Dosage: unknown
  16. DIPHENHYDRAMINE [Suspect]
     Indication: PRODUCT USED FOR UNKNOWN INDICATION
     Dosage: unknown
  17. DOXORUBICIN [Concomitant]
     Indication: ACUTE MYELOID LEUKAEMIA
     Dosage: 50 UNK, UNK

REACTIONS (14)
  - Leukoencephalopathy [Recovered/Resolved]
  - Peripheral sensory neuropathy [Unknown]
  - Skin exfoliation [Unknown]
  - Clostridium difficile colitis [Unknown]
  - Mental status changes [Unknown]
  - Hypokalaemia [Recovering/Resolving]
  - Adrenal insufficiency [Recovering/Resolving]
  - Blood bilirubin increased [Unknown]
  - Hypotension [Recovering/Resolving]
  - Convulsion [Recovered/Resolved]
  - Pain [Unknown]
  - Oral pain [Unknown]
  - Flushing [Unknown]
  - Diarrhoea [Unknown]
